FAERS Safety Report 6962834-9 (Version None)
Quarter: 2010Q3

REPORT INFORMATION
  Report Type: 
  Country: None (occurrence: None)
  Receive Date: 20100823
  Receipt Date: 20100715
  Transmission Date: 20110219
  Serious: Yes (Hospitalization)
  Sender: FDA-Public Use
  Company Number: 015612

PATIENT
  Sex: Male
  Weight: 69.4003 kg

DRUGS (8)
  1. CIMZIA [Suspect]
     Indication: CROHN'S DISEASE
     Dosage: (DOSE SUBCUTANEOUS)
     Route: 058
  2. REMICADE [Suspect]
     Indication: CROHN'S DISEASE
     Dosage: (DOSE INTRAVENOUS (NOT OTHERWISE SPECIFIED)) ; (5 MG/KG) ; (5 MG/KG)
     Route: 042
     Dates: start: 20020829
  3. REMICADE [Suspect]
     Indication: CROHN'S DISEASE
     Dosage: (DOSE INTRAVENOUS (NOT OTHERWISE SPECIFIED)) ; (5 MG/KG) ; (5 MG/KG)
     Route: 042
     Dates: start: 20030822
  4. IMODIUM [Suspect]
     Indication: CROHN'S DISEASE
     Dates: end: 20100101
  5. NEXIUM [Suspect]
     Indication: CROHN'S DISEASE
  6. XIFAXAN [Suspect]
     Indication: CROHN'S DISEASE
  7. CHOLESTYRAMINE [Suspect]
     Indication: CROHN'S DISEASE
  8. ANTISPASMODICS/ ANTICHOLINERGICS [Suspect]
     Indication: CROHN'S DISEASE

REACTIONS (1)
  - CROHN'S DISEASE [None]
